FAERS Safety Report 18409256 (Version 1)
Quarter: 2020Q4

REPORT INFORMATION
  Report Type: Spontaneous
  Country: PL (occurrence: PL)
  Receive Date: 20201021
  Receipt Date: 20201021
  Transmission Date: 20210114
  Serious: Yes (Other)
  Sender: FDA-Public Use
  Company Number: PL-ACCORD-205773

PATIENT
  Age: 26 Year
  Sex: Female
  Weight: 57 kg

DRUGS (3)
  1. LEVOFOLIC [Suspect]
     Active Substance: LEUCOVORIN
     Indication: RECTAL CANCER
     Dosage: DOSE: 326, UNIT UNKNOWN. THERAPY ONGOING.
     Route: 042
     Dates: start: 20101029
  2. FLUOROURACIL. [Suspect]
     Active Substance: FLUOROURACIL
     Indication: RECTAL CANCER
     Dosage: DOSE: 260, UNIT UNKNOWN. THERAPY ONGOING.
     Route: 042
     Dates: start: 20101029
  3. OXALIPLATIN. [Suspect]
     Active Substance: OXALIPLATIN
     Indication: RECTAL CANCER
     Dosage: DOSE: 138, UNIT UNKNOWN. THERAPY ONGOING.
     Route: 042
     Dates: start: 20101029

REACTIONS (1)
  - Urinary tract infection [Unknown]

NARRATIVE: CASE EVENT DATE: 20200130
